FAERS Safety Report 7536720-X (Version None)
Quarter: 2011Q2

REPORT INFORMATION
  Report Type: 
  Country: None (occurrence: None)
  Receive Date: 20110609
  Receipt Date: 20110526
  Transmission Date: 20111010
  Serious: Yes (Hospitalization)
  Sender: FDA-Public Use
  Company Number: B0722054A

PATIENT
  Age: 29 Year
  Sex: Female

DRUGS (5)
  1. CHLORPHENIRAMINE MALEATE [Concomitant]
     Dosage: 20MG PER DAY
  2. TENOFOVIR DISOPROXIL FUMARATE [Concomitant]
     Indication: HIV INFECTION
  3. ACYCLOVIR [Suspect]
     Indication: NECROTISING RETINITIS
     Dosage: 30MGK PER DAY
     Route: 042
  4. DEXAMETHASONE [Concomitant]
     Dosage: .4PCT PER DAY
     Route: 061
  5. LAMIVUDINE [Concomitant]
     Indication: HIV INFECTION

REACTIONS (7)
  - ANGIOEDEMA [None]
  - HAEMOGLOBIN DECREASED [None]
  - RASH [None]
  - SWELLING [None]
  - CONDITION AGGRAVATED [None]
  - HYPERSENSITIVITY [None]
  - RASH MACULAR [None]
